FAERS Safety Report 20706625 (Version 3)
Quarter: 2022Q2

REPORT INFORMATION
  Report Type: Report from Study
  Country: KR (occurrence: KR)
  Receive Date: 20220413
  Receipt Date: 20220614
  Transmission Date: 20220720
  Serious: Yes (Hospitalization, Other)
  Sender: FDA-Public Use
  Company Number: KR-TAKEDA-2022TUS023259

PATIENT
  Age: 81 Year
  Sex: Male
  Weight: 45 kg

DRUGS (20)
  1. BRIGATINIB [Suspect]
     Active Substance: BRIGATINIB
     Indication: Non-small cell lung cancer
     Dosage: 90 MILLIGRAM, QD
     Route: 048
     Dates: start: 20201217, end: 20201222
  2. BRIGATINIB [Suspect]
     Active Substance: BRIGATINIB
     Dosage: 180 MILLIGRAM, QD
     Route: 048
     Dates: start: 20201223, end: 20210527
  3. PREDNISOLONE [Concomitant]
     Active Substance: PREDNISOLONE
     Indication: Chronic gastritis
     Dosage: UNK UNK, BID
     Route: 048
     Dates: start: 20201216
  4. THEOBROMINE [Concomitant]
     Active Substance: THEOBROMINE
     Indication: Rhinitis allergic
     Dosage: 300 MILLIGRAM, BID
     Route: 048
     Dates: start: 20201216
  5. HERBALS [Concomitant]
     Active Substance: HERBALS
     Indication: Chronic gastritis
     Dosage: UNK UNK, BID
     Route: 048
     Dates: start: 20201216, end: 20210511
  6. SYNATURA [Concomitant]
     Indication: Bronchitis chronic
     Dosage: 15 MILLILITER, BID
     Route: 048
     Dates: start: 20201216
  7. FERROUS SULFATE\PROTEASE [Concomitant]
     Active Substance: FERROUS SULFATE\PROTEASE
     Indication: Anaemia
     Dosage: UNK UNK, BID
     Route: 048
     Dates: start: 20201216
  8. RUPAFIN [Concomitant]
     Active Substance: RUPATADINE FUMARATE
     Indication: Rhinitis allergic
     Dosage: UNK UNK, QD
     Route: 048
     Dates: start: 20201223, end: 20210511
  9. ACETYLCYSTEINE [Concomitant]
     Active Substance: ACETYLCYSTEINE
     Indication: Bronchitis chronic
     Dosage: 200 MILLIGRAM, BID
     Route: 048
     Dates: start: 20201223
  10. URSODIOL [Concomitant]
     Active Substance: URSODIOL
     Indication: Aspartate aminotransferase increased
     Dosage: 100 MILLIGRAM, BID
     Route: 048
     Dates: start: 20210120
  11. Acelex [Concomitant]
     Indication: Arthritis bacterial
     Dosage: 2 MILLIGRAM, QD
     Route: 048
     Dates: start: 20210304, end: 20210429
  12. Acelex [Concomitant]
     Dosage: 2 MILLIGRAM
     Route: 065
     Dates: start: 20210430
  13. JOINS [Concomitant]
     Indication: Arthritis bacterial
     Dosage: 200 MILLIGRAM, BID
     Route: 048
     Dates: start: 20210304, end: 20210429
  14. STILLEN [Concomitant]
     Indication: Chronic gastritis
     Dosage: UNK UNK, BID
     Route: 048
     Dates: start: 20210304, end: 20210502
  15. NALOXONE HYDROCHLORIDE\OXYCODONE HYDROCHLORIDE [Concomitant]
     Active Substance: NALOXONE HYDROCHLORIDE\OXYCODONE HYDROCHLORIDE
     Indication: Lung neoplasm malignant
     Dosage: 2.5 MILLIGRAM, BID
     Route: 048
     Dates: start: 20210120, end: 20210511
  16. RAMNOS [Concomitant]
     Indication: Diarrhoea
     Dosage: 250 MILLIGRAM, TID
     Route: 048
     Dates: start: 20210330, end: 20210524
  17. SHUMACTON [Concomitant]
     Indication: Diarrhoea
     Dosage: 20 MILLILITER, BID
     Route: 048
     Dates: start: 20210330, end: 20210419
  18. LASIX [Concomitant]
     Active Substance: FUROSEMIDE
     Indication: Oedema
     Dosage: UNK UNK, BID
     Route: 048
     Dates: start: 20210317
  19. LANSOPRAZOLE [Concomitant]
     Active Substance: LANSOPRAZOLE
     Indication: Chronic gastritis
     Dosage: 15 MILLIGRAM, QD
     Route: 048
     Dates: start: 20201216
  20. UMCKAMIN [Concomitant]
     Indication: Bronchitis chronic
     Dosage: UNK UNK, BID
     Route: 048
     Dates: start: 20201216

REACTIONS (1)
  - Pneumonia [Recovered/Resolved]

NARRATIVE: CASE EVENT DATE: 20210506
